FAERS Safety Report 24848097 (Version 1)
Quarter: 2025Q1

REPORT INFORMATION
  Report Type: Spontaneous
  Country: US (occurrence: US)
  Receive Date: 20250116
  Receipt Date: 20250116
  Transmission Date: 20250409
  Serious: Yes (Hospitalization, Other)
  Sender: ZYDUS PHARM
  Company Number: US-CADILA HEALTHCARE LIMITED-US-ZYDUS-117627

PATIENT

DRUGS (5)
  1. DEXAMETHASONE [Suspect]
     Active Substance: DEXAMETHASONE
     Indication: Hypopituitarism
     Route: 065
  2. DEXAMETHASONE [Suspect]
     Active Substance: DEXAMETHASONE
     Route: 065
  3. DEXAMETHASONE [Suspect]
     Active Substance: DEXAMETHASONE
     Route: 065
  4. LEVOTHYROXINE [Concomitant]
     Active Substance: LEVOTHYROXINE
     Indication: Hypopituitarism
     Route: 065
  5. ESTRADIOL [Concomitant]
     Active Substance: ESTRADIOL
     Indication: Product used for unknown indication
     Route: 065

REACTIONS (3)
  - Thyroxine free abnormal [Unknown]
  - Hyperglycaemia [Unknown]
  - Cushing^s syndrome [Unknown]
